FAERS Safety Report 10420349 (Version 1)
Quarter: 2014Q3

REPORT INFORMATION
  Report Type: Spontaneous
  Country: US (occurrence: None)
  Receive Date: 20140701
  Receipt Date: 20140701
  Transmission Date: 20150326
  Serious: No
  Sender: FDA-Public Use
  Company Number: 1000066011

PATIENT
  Age: 67 Year
  Sex: Female

DRUGS (5)
  1. NEXIUM(ESOMEPRAZOLE)(ESOMEPRAZOLE) [Concomitant]
  2. LOSARTAN(LOSARTAN)(LOSARTAN) [Concomitant]
  3. LINZESS [Suspect]
     Active Substance: LINACLOTIDE
     Indication: IRRITABLE BOWEL SYNDROME
     Route: 048
     Dates: start: 20140315
  4. LIPITOR(ATORVASTATIN CALCIUM)(ATORVASTATIN CALCIUM) [Concomitant]
  5. LIBRAX(CHLORDIAZEPDXIDE, CLIDINIUM)(CHLORDIAZEPDXIDE, CLIDINIUM) [Concomitant]

REACTIONS (3)
  - Insomnia [None]
  - Flatulence [None]
  - Abdominal pain [None]

NARRATIVE: CASE EVENT DATE: 20140325
